FAERS Safety Report 9514716 (Version 1)
Quarter: 2013Q1

REPORT INFORMATION
  Report Type: Spontaneous
  Country: US (occurrence: None)
  Receive Date: 20130305
  Receipt Date: 20130305
  Transmission Date: 20140127
  Serious: Yes (Other)
  Sender: FDA-Public Use
  Company Number: 163-21880-12112952

PATIENT
  Age: 79 Year
  Sex: Male
  Weight: 70.9 kg

DRUGS (1)
  1. REVLIMID [Suspect]
     Indication: PLASMA CELL MYELOMA
     Dosage: 25 MG, 21 IN 28 D, PO
     Route: 048
     Dates: start: 20120531

REACTIONS (4)
  - Confusional state [None]
  - Local swelling [None]
  - Fatigue [None]
  - Asthenia [None]
